FAERS Safety Report 12998334 (Version 2)
Quarter: 2017Q1

REPORT INFORMATION
  Report Type: Report from Study
  Country: IL (occurrence: IL)
  Receive Date: 20161205
  Receipt Date: 20170203
  Transmission Date: 20170428
  Serious: Yes (Hospitalization)
  Sender: FDA-Public Use
  Company Number: IL-009507513-1611ISR013861

PATIENT
  Age: 70 Year
  Sex: Female

DRUGS (10)
  1. DEXACORT (DEXAMETHASONE) [Concomitant]
     Indication: CRANIOTOMY
     Dosage: 4 MG, BID
     Route: 048
     Dates: start: 20160829, end: 20161019
  2. TEMOZOLOMIDE. [Suspect]
     Active Substance: TEMOZOLOMIDE
     Indication: GLIOBLASTOMA MULTIFORME
     Dosage: 75 MG/M2, QD
     Route: 048
     Dates: start: 20160925, end: 20161015
  3. PRAMIN [Concomitant]
     Indication: PROPHYLAXIS OF NAUSEA AND VOMITING
     Dosage: 1 TABLET, QD
     Route: 048
     Dates: start: 20160929
  4. ABT-414 [Suspect]
     Active Substance: INVESTIGATIONAL PRODUCT
     Indication: GLIOBLASTOMA MULTIFORME
     Dosage: UNK
     Route: 042
     Dates: start: 20160925
  5. CO-DIOVAN [Concomitant]
     Active Substance: HYDROCHLOROTHIAZIDE\VALSARTAN
     Indication: HYPERTENSION
     Dosage: 1 TABLET, QD
     Route: 048
     Dates: start: 2013
  6. LOTEMAX [Concomitant]
     Active Substance: LOTEPREDNOL ETABONATE
     Indication: GLIOBLASTOMA
     Dosage: 0.5 %, QD
     Route: 047
     Dates: start: 20160923
  7. DEXACORT (DEXAMETHASONE) [Concomitant]
     Dosage: 6 MG, BID
     Route: 048
     Dates: start: 20161020, end: 20161102
  8. LOSEC (OMEPRAZOLE) [Concomitant]
     Indication: PROPHYLAXIS
     Dosage: 20 MG, BID
     Route: 048
     Dates: start: 20160829
  9. RESPRIM [Concomitant]
     Indication: PROPHYLAXIS
     Dosage: 960 MG, 3 IN 1 WEEK
     Route: 048
     Dates: start: 20161011
  10. DEXACORT (DEXAMETHASONE) [Concomitant]
     Dosage: 8 MG, BID
     Route: 048
     Dates: start: 20161103

REACTIONS (1)
  - Herpes simplex [Not Recovered/Not Resolved]

NARRATIVE: CASE EVENT DATE: 20161101
